FAERS Safety Report 8766876 (Version 1)
Quarter: 2012Q4

REPORT INFORMATION
  Report Type: 
  Country: US (occurrence: US)
  Receive Date: 20120904
  Receipt Date: 20120904
  Transmission Date: 20130627
  Serious: Yes (Death)
  Sender: FDA-Public Use
  Company Number: US-SANOFI-AVENTIS-2012SA061885

PATIENT
  Age: 75 Year
  Sex: Male

DRUGS (18)
  1. MULTAQ [Suspect]
     Indication: ATRIAL FIBRILLATION
     Dates: start: 20120816
  2. PLAVIX [Concomitant]
     Indication: DRUG USE FOR UNKNOWN INDICATION
  3. LOPRESSOR [Concomitant]
  4. DIGOXIN [Concomitant]
  5. ASPIRIN [Concomitant]
  6. HYDROCHLOROTHIAZIDE [Concomitant]
  7. ATORVASTATIN [Concomitant]
  8. AMLODIPINE BESILATE [Concomitant]
  9. BENAZEPRIL [Concomitant]
  10. GLYCERYL TRINITRATE [Concomitant]
  11. PEPCID [Concomitant]
  12. ATIVAN [Concomitant]
  13. GLIMEPIRIDE [Concomitant]
  14. KLOR-CON [Concomitant]
  15. VITAMINS [Concomitant]
  16. AMOXICILLIN [Concomitant]
  17. ERGOCALCIFEROL [Concomitant]
  18. FLUOCINONIDE [Concomitant]
     Indication: RASH

REACTIONS (1)
  - Death [Fatal]
